FAERS Safety Report 6263247-8 (Version None)
Quarter: 2009Q3

REPORT INFORMATION
  Report Type: 
  Country: None (occurrence: None)
  Receive Date: 20090710
  Receipt Date: 20090630
  Transmission Date: 20100115
  Serious: Yes (Other)
  Sender: FDA-Public Use
  Company Number: US-MYLANLABS-2009S1010289

PATIENT
  Age: 57 Year
  Sex: Female
  Weight: 81.65 kg

DRUGS (10)
  1. HYDROXYCHLOROQUINE SULFATE [Suspect]
     Indication: RHEUMATOID FACTOR POSITIVE
     Route: 048
     Dates: start: 20090507, end: 20090601
  2. HYDROXYCHLOROQUINE SULFATE [Suspect]
     Indication: GOUT
     Route: 048
     Dates: start: 20090507, end: 20090601
  3. HYDROXYCHLOROQUINE SULFATE [Suspect]
     Indication: RHEUMATOID ARTHRITIS
     Route: 048
     Dates: start: 20090507, end: 20090601
  4. AVALIDE [Concomitant]
     Indication: BLOOD PRESSURE INCREASED
     Dosage: 150MG/12.5MG
     Route: 048
  5. VERAPAMIL [Concomitant]
     Indication: BLOOD PRESSURE INCREASED
     Route: 048
  6. ALPRAZOLAM [Concomitant]
  7. FUROSEMIDE [Concomitant]
  8. SKELAXIN [Concomitant]
  9. TRAMADOL [Concomitant]
  10. VIVELLE [Concomitant]

REACTIONS (1)
  - HYPERSENSITIVITY [None]
